FAERS Safety Report 18777084 (Version 3)
Quarter: 2021Q3

REPORT INFORMATION
  Report Type: Report from Study
  Country: US (occurrence: US)
  Receive Date: 20210122
  Receipt Date: 20210831
  Transmission Date: 20211014
  Serious: Yes (Other)
  Sender: FDA-Public Use
  Company Number: NVSC2021US011803

PATIENT
  Sex: Male

DRUGS (1)
  1. ENTRESTO [Suspect]
     Active Substance: SACUBITRIL\VALSARTAN
     Indication: PRODUCT USED FOR UNKNOWN INDICATION
     Dosage: 50 MG, BID (24.26 MG)
     Route: 048

REACTIONS (9)
  - Product dose omission issue [Unknown]
  - Cardiogenic shock [Unknown]
  - Memory impairment [Unknown]
  - Hypotension [Unknown]
  - Sleep apnoea syndrome [Unknown]
  - Sinusitis [Unknown]
  - Eye pruritus [Unknown]
  - Seasonal allergy [Unknown]
  - Oropharyngeal discomfort [Unknown]
